FAERS Safety Report 9476633 (Version 1)
Quarter: 2013Q3

REPORT INFORMATION
  Report Type: Spontaneous
  Country: DK (occurrence: DK)
  Receive Date: 20130826
  Receipt Date: 20130826
  Transmission Date: 20140515
  Serious: Yes (Other)
  Sender: FDA-Public Use
  Company Number: PHHY2013DK090237

PATIENT
  Sex: Female

DRUGS (6)
  1. EPIRUBICIN [Suspect]
     Indication: INVASIVE LOBULAR BREAST CARCINOMA
     Dosage: UNK, MAXIMUM DOSE GIVEN (A TOTAL OF 15 CEF) TREATMENTS
     Dates: start: 2002, end: 20030522
  2. CYCLOPHOSPHAMIDE [Concomitant]
     Indication: INVASIVE LOBULAR BREAST CARCINOMA
     Dosage: UNK, MAXIMUM DOSE GIVEN (A TOTAL OF 15 CEF) TREATMENTS
     Dates: start: 2002, end: 20030522
  3. FLUOROURACIL [Concomitant]
     Indication: INVASIVE LOBULAR BREAST CARCINOMA
     Dosage: UNK, MAXIMUM DOSE GIVEN (A TOTAL OF 15 CEF) TREATMENTS
     Dates: start: 2002, end: 20030522
  4. ARIMIDEX [Concomitant]
     Indication: INVASIVE LOBULAR BREAST CARCINOMA
     Dosage: UNK UKN, UNK
     Dates: start: 2003, end: 201108
  5. AROMASIN [Concomitant]
     Indication: INVASIVE LOBULAR BREAST CARCINOMA
     Dosage: UNK UKN, UNK
     Dates: start: 201108, end: 201110
  6. LETROZOL [Concomitant]
     Indication: INVASIVE LOBULAR BREAST CARCINOMA
     Dosage: UNK UKN, UNK
     Dates: start: 201110

REACTIONS (8)
  - Impaired work ability [Unknown]
  - Quality of life decreased [Unknown]
  - Pain [Unknown]
  - Mobility decreased [Unknown]
  - Cardiac failure [Not Recovered/Not Resolved]
  - Dyspnoea exertional [Not Recovered/Not Resolved]
  - Pulmonary function test decreased [Unknown]
  - Cardiac function test abnormal [Not Recovered/Not Resolved]
